FAERS Safety Report 19452298 (Version 1)
Quarter: 2021Q2

REPORT INFORMATION
  Report Type: Spontaneous
  Country: US (occurrence: US)
  Receive Date: 20210623
  Receipt Date: 20210623
  Transmission Date: 20210717
  Serious: No
  Sender: FDA-Public Use
  Company Number: US-ACCORD-200688

PATIENT
  Age: 63 Year
  Sex: Female
  Weight: 86.18 kg

DRUGS (7)
  1. DEPAKOTE ER [Concomitant]
     Active Substance: DIVALPROEX SODIUM
     Dosage: 250 3 X DAILY
  2. BISTRYL [Concomitant]
     Dosage: 2 AT BEDTIME (50 MG TAB)
  3. RASAGILINE. [Concomitant]
     Active Substance: RASAGILINE
     Dosage: 1 MG TAB ? ONCE DAILY
  4. CLONAZEPAM ACCORD [Suspect]
     Active Substance: CLONAZEPAM
     Indication: SLEEP DISORDER
     Dosage: 0.5 MG 2 TIMES DAILY
     Route: 048
     Dates: start: 20200907
  5. SINEMET [Concomitant]
     Active Substance: CARBIDOPA\LEVODOPA
     Dosage: 0.5 TAB 5 TIMES A DAY
  6. CARBIDOPA/ENTACAPONE/LEVODOPA [Concomitant]
     Active Substance: CARBIDOPA\ENTACAPONE\LEVODOPA
     Dosage: STRENGTH: 25?100?200
  7. IRBESARTAN. [Concomitant]
     Active Substance: IRBESARTAN
     Indication: BLOOD PRESSURE MEASUREMENT
     Dosage: 150 MG ONCE A DAY

REACTIONS (3)
  - Product substitution issue [Unknown]
  - Drug ineffective [Unknown]
  - Off label use [Unknown]

NARRATIVE: CASE EVENT DATE: 20200907
